FAERS Safety Report 9961794 (Version 1)
Quarter: 2014Q1

REPORT INFORMATION
  Report Type: Report from Study
  Country: US (occurrence: US)
  Receive Date: 20140305
  Receipt Date: 20140305
  Transmission Date: 20141002
  Serious: No
  Sender: FDA-Public Use
  Company Number: US-ABBVIE-13P-163-1113428-00

PATIENT
  Age: 20 Year
  Sex: Female

DRUGS (3)
  1. HUMIRA [Suspect]
     Indication: ANKYLOSING SPONDYLITIS
     Dates: start: 20121115
  2. NORTREL [Suspect]
     Indication: OVARIAN CYST
  3. CELEXA [Concomitant]
     Indication: DEPRESSION
     Route: 048

REACTIONS (2)
  - Arthropod sting [Not Recovered/Not Resolved]
  - Acne [Not Recovered/Not Resolved]
